FAERS Safety Report 6138825-7 (Version None)
Quarter: 2009Q1

REPORT INFORMATION
  Report Type: 
  Country: None (occurrence: None)
  Receive Date: 20090331
  Receipt Date: 20090324
  Transmission Date: 20090719
  Serious: Yes (Other)
  Sender: FDA-Public Use
  Company Number: US-ROXANE LABORATORIES, INC.-2009-RO-00276RO

PATIENT
  Age: 61 Year
  Sex: Male

DRUGS (8)
  1. METHADONE [Suspect]
     Indication: PAIN
     Route: 042
  2. METHADONE [Suspect]
     Route: 042
  3. HYDROMORPHONE HCL [Suspect]
     Indication: PAIN
     Route: 051
  4. DEXAMETHASONE TAB [Suspect]
     Indication: BONE PAIN
     Dosage: 20MG
     Route: 042
  5. HALOPERIDOL [Suspect]
     Indication: NAUSEA
     Route: 060
  6. HALOPERIDOL [Suspect]
     Indication: DELIRIUM
  7. HYOSCYAMINE [Suspect]
     Indication: RESPIRATORY TRACT CONGESTION
     Route: 060
  8. GABAPENTIN [Concomitant]
     Indication: NEURALGIA
     Route: 048

REACTIONS (2)
  - DRUG INEFFECTIVE [None]
  - MYOCLONUS [None]
